FAERS Safety Report 4802591-5 (Version None)
Quarter: 2005Q4

REPORT INFORMATION
  Report Type: 
  Country: None (occurrence: None)
  Receive Date: 20051011
  Receipt Date: 20050930
  Transmission Date: 20060501
  Serious: No
  Sender: FDA-Public Use
  Company Number: 05H-163-0302806-00

PATIENT
  Age: 43 Year
  Sex: Male

DRUGS (2)
  1. KETOROLAC TROMETHAMINE [Suspect]
     Indication: ANALGESIC EFFECT
     Dosage: 30 MG, ONCE, INTRAVENOUS
     Route: 042
     Dates: start: 20050907, end: 20050907
  2. MARCAINE [Concomitant]

REACTIONS (6)
  - CHROMATURIA [None]
  - HEPATITIS [None]
  - INFLAMMATION [None]
  - JAUNDICE [None]
  - MALAISE [None]
  - NAUSEA [None]
